FAERS Safety Report 7070140-X (Version None)
Quarter: 2010Q4

REPORT INFORMATION
  Report Type: 
  Country: None (occurrence: None)
  Receive Date: 20101028
  Receipt Date: 20100831
  Transmission Date: 20110411
  Serious: No
  Sender: FDA-Public Use
  Company Number: US-WYE-H17244210

PATIENT
  Sex: Female
  Weight: 67.65 kg

DRUGS (5)
  1. ADVIL [Suspect]
     Indication: NEURALGIA
     Dosage: UNKNOWN
     Route: 048
     Dates: start: 20100401, end: 20100101
  2. CELECOXIB [Concomitant]
     Indication: PAIN
     Dosage: UNKNOWN
     Route: 048
  3. CLONAZEPAM [Concomitant]
     Indication: PRODUCT USED FOR UNKNOWN INDICATION
     Dosage: UNKNOWN
     Route: 065
  4. DILANTIN [Concomitant]
     Indication: PARTIAL SEIZURES
     Dosage: UNKNOWN
     Route: 065
  5. LISINOPRIL [Concomitant]
     Indication: HYPERTENSION
     Dosage: UNKNOWN
     Route: 065

REACTIONS (3)
  - GASTRITIS [None]
  - PRURITUS [None]
  - RASH [None]
